FAERS Safety Report 4379340-0 (Version None)
Quarter: 2004Q2

REPORT INFORMATION
  Report Type: 
  Country: None (occurrence: None)
  Receive Date: 20040610
  Receipt Date: 20040528
  Transmission Date: 20050107
  Serious: Yes (Life-Threatening, Hospitalization, Other)
  Sender: FDA-Public Use
  Company Number: 2004-05-0117

PATIENT
  Sex: Female

DRUGS (11)
  1. CLARITIN-D 24 HOUR [Suspect]
     Indication: LACRIMATION INCREASED
     Dosage: 1 TAB ORAL
     Route: 048
     Dates: start: 20040428, end: 20040429
  2. CLARITIN-D 24 HOUR [Suspect]
     Indication: PRURITUS
     Dosage: 1 TAB ORAL
     Route: 048
     Dates: start: 20040428, end: 20040429
  3. CLARITIN-D 24 HOUR [Suspect]
     Indication: RHINORRHOEA
     Dosage: 1 TAB ORAL
     Route: 048
     Dates: start: 20040428, end: 20040429
  4. CLARITIN-D 24 HOUR [Suspect]
     Indication: SNEEZING
     Dosage: 1 TAB ORAL
     Route: 048
     Dates: start: 20040428, end: 20040429
  5. SYNTHROID [Concomitant]
  6. ASPIRIN BABY [Concomitant]
  7. PREVACID [Concomitant]
  8. ZESTRIL [Concomitant]
  9. ATENOLOL [Concomitant]
  10. SYNTHROID [Concomitant]
  11. TYLENOL [Concomitant]

REACTIONS (2)
  - HAEMORRHAGIC STROKE [None]
  - ISCHAEMIC STROKE [None]
